FAERS Safety Report 4892178-0 (Version None)
Quarter: 2006Q1

REPORT INFORMATION
  Report Type: 
  Country: None (occurrence: None)
  Receive Date: 20060123
  Receipt Date: 20060113
  Transmission Date: 20060701
  Serious: Yes (Hospitalization)
  Sender: FDA-Public Use
  Company Number: 2006-01-0861

PATIENT
  Sex: Female

DRUGS (2)
  1. INTEGRILIN [Suspect]
     Indication: CORONARY ARTERY SURGERY
     Dosage: INTRAVENOUS
     Route: 042
  2. ENOXAPARIN SODIUM [Suspect]
     Indication: CORONARY ARTERY SURGERY
     Dosage: INTRAVENOUS
     Route: 042

REACTIONS (1)
  - HAEMATOMA [None]
